FAERS Safety Report 16836706 (Version 3)
Quarter: 2019Q4

REPORT INFORMATION
  Report Type: Report from Study
  Country: US (occurrence: US)
  Receive Date: 20190922
  Receipt Date: 20191020
  Transmission Date: 20200122
  Serious: Yes (Other)
  Sender: FDA-Public Use
  Company Number: PHEH2019US038821

PATIENT
  Age: 70 Year
  Sex: Female

DRUGS (1)
  1. TASIGNA [Suspect]
     Active Substance: NILOTINIB
     Indication: CHRONIC MYELOID LEUKAEMIA
     Dosage: 300 MG, BID
     Route: 048
     Dates: start: 20190821, end: 20190827

REACTIONS (8)
  - Dyspepsia [Unknown]
  - Vomiting [Unknown]
  - Weight decreased [Unknown]
  - Lipase increased [Unknown]
  - Pancreatitis [Recovered/Resolved]
  - Abdominal pain upper [Unknown]
  - Nausea [Unknown]
  - Amylase increased [Unknown]

NARRATIVE: CASE EVENT DATE: 20190827
